FAERS Safety Report 19709908 (Version 1)
Quarter: 2021Q3

REPORT INFORMATION
  Report Type: Spontaneous
  Country: SA (occurrence: SA)
  Receive Date: 20210817
  Receipt Date: 20210817
  Transmission Date: 20211014
  Serious: Yes (Other)
  Sender: FDA-Public Use
  Company Number: SA-ABBVIE-21K-259-4038959-00

PATIENT
  Age: 2 Year
  Sex: Male

DRUGS (3)
  1. AMPICILLIN [Concomitant]
     Active Substance: AMPICILLIN
     Indication: PRODUCT USED FOR UNKNOWN INDICATION
  2. DEPAKINE [Suspect]
     Active Substance: VALPROATE SODIUM
     Indication: FEBRILE CONVULSION
     Route: 048
  3. PARACETAMOL [Concomitant]
     Active Substance: ACETAMINOPHEN
     Indication: PRODUCT USED FOR UNKNOWN INDICATION

REACTIONS (5)
  - Pruritus [Recovered/Resolved]
  - Erythema [Recovered/Resolved]
  - Dermatitis exfoliative [Recovered/Resolved]
  - Dermatitis allergic [Recovered/Resolved]
  - Type IV hypersensitivity reaction [Recovered/Resolved]
